FAERS Safety Report 14880977 (Version 2)
Quarter: 2019Q1

REPORT INFORMATION
  Report Type: Spontaneous
  Country: US (occurrence: US)
  Receive Date: 20180511
  Receipt Date: 20190314
  Transmission Date: 20190417
  Serious: Yes (Other)
  Sender: FDA-Public Use
  Company Number: US-TEVA-2018-US-890603

PATIENT
  Age: 48 Year
  Sex: Female

DRUGS (1)
  1. ADIPEX-P [Suspect]
     Active Substance: PHENTERMINE HYDROCHLORIDE
     Indication: WEIGHT CONTROL
     Route: 065
     Dates: start: 201803, end: 201803

REACTIONS (5)
  - Weight loss poor [Recovered/Resolved]
  - Depression [Recovering/Resolving]
  - Pneumonia [Recovering/Resolving]
  - Dizziness [Recovering/Resolving]
  - Bronchitis [Recovering/Resolving]

NARRATIVE: CASE EVENT DATE: 2018
